FAERS Safety Report 19838592 (Version 6)
Quarter: 2022Q1

REPORT INFORMATION
  Report Type: Report from Study
  Country: AU (occurrence: AU)
  Receive Date: 20210916
  Receipt Date: 20220104
  Transmission Date: 20220424
  Serious: Yes (Life-Threatening, Hospitalization)
  Sender: FDA-Public Use
  Company Number: NVSC2021AU208230

PATIENT
  Age: 12 Year
  Sex: Female
  Weight: 26 kg

DRUGS (19)
  1. TOPOTECAN [Suspect]
     Active Substance: TOPOTECAN HYDROCHLORIDE
     Indication: Product used for unknown indication
     Dosage: 0.75 MG, (DAILY FOR 5 DAYS)
     Route: 042
     Dates: start: 20210818, end: 20210822
  2. TOPOTECAN [Suspect]
     Active Substance: TOPOTECAN HYDROCHLORIDE
     Dosage: 0.75 MG/M2 (5 DAYS EVERY 21 DAYS)
     Route: 042
     Dates: start: 20210921
  3. TOPOTECAN [Suspect]
     Active Substance: TOPOTECAN HYDROCHLORIDE
     Dosage: 0.75 MG/M2 (DAILY FOR 5 DAYS EVERY 21 DAYS)
     Route: 042
     Dates: start: 20210818
  4. CYCLOPHOSPHAMIDE [Suspect]
     Active Substance: CYCLOPHOSPHAMIDE
     Indication: Refractory cancer
     Dosage: 250 MG/M2 (5 DAYS EVERY 21 DAYS)
     Route: 042
     Dates: start: 20210818, end: 20210822
  5. CYCLOPHOSPHAMIDE [Suspect]
     Active Substance: CYCLOPHOSPHAMIDE
     Dosage: 250 MG/M2 (5 DAYS EVERY 21 DAYS)
     Route: 042
     Dates: start: 20210921
  6. CYCLOPHOSPHAMIDE [Suspect]
     Active Substance: CYCLOPHOSPHAMIDE
     Dosage: 250 MG (DAILY FOR 5 DAYS EVERY 21 DAYS)
     Route: 042
     Dates: start: 20210818
  7. VENETOCLAX [Suspect]
     Active Substance: VENETOCLAX
     Indication: Refractory cancer
     Dosage: 350 MG, QD, (DAY 1-10)
     Route: 048
     Dates: start: 20210816, end: 20210816
  8. VENETOCLAX [Suspect]
     Active Substance: VENETOCLAX
     Dosage: 170 MG (1 IN 1 D)
     Route: 065
     Dates: start: 20210817, end: 20210929
  9. VENETOCLAX [Suspect]
     Active Substance: VENETOCLAX
     Dosage: UNK (ON DAYS 1-10, 3)
     Route: 048
     Dates: start: 20210816, end: 20210818
  10. VENETOCLAX [Suspect]
     Active Substance: VENETOCLAX
     Dosage: 350 MG, QD
     Route: 048
     Dates: start: 20210816
  11. ACETAMINOPHEN [Concomitant]
     Active Substance: ACETAMINOPHEN
     Indication: Arthralgia
     Dosage: UNK, (Q4-6H)
     Route: 042
  12. ACETAMINOPHEN [Concomitant]
     Active Substance: ACETAMINOPHEN
     Dosage: 375 MG (Q4-6H)
     Route: 048
     Dates: start: 20210819
  13. METOCLOPRAMIDE [Concomitant]
     Active Substance: METOCLOPRAMIDE
     Indication: Nausea
     Dosage: 2.5 MG, TID
     Route: 042
     Dates: start: 20210817
  14. METOCLOPRAMIDE [Concomitant]
     Active Substance: METOCLOPRAMIDE
     Indication: Vomiting
  15. METOCLOPRAMIDE [Concomitant]
     Active Substance: METOCLOPRAMIDE
     Indication: Recurrent cancer
  16. METOCLOPRAMIDE [Concomitant]
     Active Substance: METOCLOPRAMIDE
     Indication: Refractory cancer
  17. CYCLIZINE [Concomitant]
     Active Substance: CYCLIZINE
     Indication: Nausea
     Dosage: UNK, TID (25-50 MG PO/IV)
     Route: 065
     Dates: start: 20210818
  18. CYCLIZINE [Concomitant]
     Active Substance: CYCLIZINE
     Indication: Vomiting
  19. CEPHALEXIN [Concomitant]
     Active Substance: CEPHALEXIN
     Indication: Urinary tract infection
     Dosage: 320 MG, Q6H (ROUTE: PO/NG)
     Route: 065
     Dates: start: 20210820

REACTIONS (7)
  - Hypotension [Recovered/Resolved]
  - Febrile neutropenia [Recovered/Resolved]
  - Pyrexia [Unknown]
  - Tachycardia [Unknown]
  - Lethargy [Unknown]
  - Diarrhoea [Unknown]
  - Contusion [Unknown]

NARRATIVE: CASE EVENT DATE: 20210828
